FAERS Safety Report 18012099 (Version 2)
Quarter: 2020Q3

REPORT INFORMATION
  Report Type: Spontaneous
  Country: US (occurrence: US)
  Receive Date: 20200713
  Receipt Date: 20200721
  Transmission Date: 20201103
  Serious: Yes (Other)
  Sender: FDA-Public Use
  Company Number: US-009507513-2007USA003832

PATIENT
  Sex: Female
  Weight: 59.36 kg

DRUGS (4)
  1. ERGOCALCIFEROL. [Concomitant]
     Active Substance: ERGOCALCIFEROL
     Dosage: 1 CAPSULE(S) ONCE A WEEKQTY 12 TABLET(S) FOR 90 DAY(S) REFILLS: 1
  2. GRANIX [Concomitant]
     Active Substance: TBO-FILGRASTIM
     Dosage: 300 MCG DAILY
  3. LISINOPRIL (+) HYDROCHLOROTHIAZIDE [Concomitant]
     Active Substance: HYDROCHLOROTHIAZIDE\LISINOPRIL
     Dosage: 1 TABLET DAILY
     Route: 048
  4. KEYTRUDA [Suspect]
     Active Substance: PEMBROLIZUMAB
     Dosage: UNK

REACTIONS (25)
  - Pneumonia [Unknown]
  - Liver function test abnormal [Unknown]
  - Malignant neoplasm progression [Unknown]
  - Lumbar vertebral fracture [Unknown]
  - Neutrophilia [Unknown]
  - Constipation [Unknown]
  - Ureteral disorder [Unknown]
  - Pulmonary mass [Unknown]
  - Haemoptysis [Unknown]
  - Renal disorder [Unknown]
  - Chronic obstructive pulmonary disease [Unknown]
  - Macrocytosis [Unknown]
  - Nausea [Unknown]
  - Normocytic anaemia [Unknown]
  - Neutropenia [Unknown]
  - Gastrointestinal haemorrhage [Unknown]
  - Medical counselling [Unknown]
  - Peripheral sensory neuropathy [Unknown]
  - Abdominal pain [Unknown]
  - Thrombocytopenia [Unknown]
  - Anaemia of chronic disease [Unknown]
  - Anaemia of malignant disease [Unknown]
  - Decreased appetite [Unknown]
  - Breast mass [Unknown]
  - Bladder disorder [Unknown]
